FAERS Safety Report 8985421 (Version 2)
Quarter: 2014Q2

REPORT INFORMATION
  Report Type: Spontaneous
  Country: US (occurrence: US)
  Receive Date: 20121226
  Receipt Date: 20131018
  Transmission Date: 20141212
  Serious: Yes (Other)
  Sender: FDA-Public Use
  Company Number: US-PFIZER INC-2012323386

PATIENT
  Age: 79 Year
  Sex: Male

DRUGS (5)
  1. METHOTREXATE SODIUM [Suspect]
     Indication: PSORIASIS
     Dosage: 12.5 MG, WEEKLY
  2. AMLODIPINE [Concomitant]
     Dosage: UNK
  3. LISINOPRIL [Concomitant]
     Dosage: UNK
  4. LOVASTATIN [Concomitant]
     Dosage: UNK
  5. TRIAMCINOLONE [Concomitant]
     Dosage: UNK

REACTIONS (1)
  - Toxicity to various agents [Recovering/Resolving]
